FAERS Safety Report 6011852-6 (Version None)
Quarter: 2008Q4

REPORT INFORMATION
  Report Type: 
  Country: None (occurrence: None)
  Receive Date: 20081218
  Receipt Date: 20081216
  Transmission Date: 20090506
  Serious: Yes (Death)
  Sender: FDA-Public Use
  Company Number: US-SANOFI-SYNTHELABO-F01200801898

PATIENT
  Sex: Female

DRUGS (4)
  1. BEVACIZUMAB [Suspect]
     Route: 042
     Dates: start: 20060313, end: 20060925
  2. LEUCOVORIN CALCIUM [Suspect]
     Dosage: 400 MG/M2
     Route: 042
     Dates: start: 20060313
  3. FLUOROURACIL [Suspect]
     Dosage: 400 MG/M2 IV BOLUS GIVEN ON DAY 1 AND 2400 MG/M2 IV CONTINUOUS INFUSION FOR 46 HOURS
     Route: 042
     Dates: start: 20060313
  4. OXALIPLATIN [Suspect]
     Dosage: 85 MG/M2
     Route: 042
     Dates: start: 20060313

REACTIONS (1)
  - GUN SHOT WOUND [None]
